FAERS Safety Report 11186278 (Version 9)
Quarter: 2017Q2

REPORT INFORMATION
  Report Type: Spontaneous
  Country: US (occurrence: US)
  Receive Date: 20150612
  Receipt Date: 20170424
  Transmission Date: 20170829
  Serious: Yes (Other)
  Sender: FDA-Public Use
  Company Number: US-PFIZER INC-2015193912

PATIENT
  Age: 22 Year
  Sex: Male

DRUGS (1)
  1. BENEFIX [Suspect]
     Active Substance: COAGULATION FACTOR IX RECOMBINANT HUMAN\ISOPROPYL ALCOHOL
     Indication: FACTOR IX DEFICIENCY
     Dosage: 6000 U IV (1/-1050) DAILY, AS NEEDED/ MONTHLY DOSAGE: 60,000 IU
     Route: 042

REACTIONS (2)
  - Haemorrhage [Unknown]
  - Joint injury [Unknown]
